FAERS Safety Report 7303704-6 (Version None)
Quarter: 2011Q1

REPORT INFORMATION
  Report Type: 
  Country: None (occurrence: None)
  Receive Date: 20110221
  Receipt Date: 20110216
  Transmission Date: 20110831
  Serious: Yes (Hospitalization)
  Sender: FDA-Public Use
  Company Number: SE-ROCHE-733664

PATIENT
  Sex: Female
  Weight: 72.5 kg

DRUGS (12)
  1. TRASTUZUMAB [Suspect]
     Indication: BREAST CANCER
     Dosage: DATE OF LAST DOSE PRIOR TO SAE: 04 OCTOBER 2010 ACTUAL DOSE 580MG LOADING DOSE
     Route: 042
     Dates: start: 20101004, end: 20101004
  2. TRASTUZUMAB [Suspect]
     Dosage: MAINTENANCE DOSE
     Route: 042
     Dates: start: 20101025
  3. CARBOPLATIN [Suspect]
     Indication: BREAST CANCER
     Dosage: DATE OF LAST DOSE PRIOR TO SAE: 04 OCTOBER 2010. DOSAGE FORM:IV
     Route: 042
     Dates: start: 20101004
  4. BETAMETASON [Concomitant]
     Dates: start: 20101003, end: 20101005
  5. CETIRIZINE HCL [Concomitant]
     Dates: start: 20101004, end: 20101007
  6. ONDANSERTRON HCL [Concomitant]
     Dates: start: 20101004, end: 20101005
  7. PERTUZUMAB [Suspect]
     Indication: BREAST CANCER
     Dosage: DATE OF LAST DOSE PRIOR TO SAE: 04 OCTOBER 2010.
     Route: 042
     Dates: start: 20101004, end: 20101004
  8. BETAMETASON [Concomitant]
     Dates: start: 20101006, end: 20101006
  9. DOCETAXEL [Suspect]
     Indication: BREAST CANCER
     Dosage: DATE OF LAST DOSE PRIOR TO SAE: 04 OCTOBER 2010. DOSAGE FORM:IV
     Route: 042
     Dates: start: 20101004
  10. PARACETAMOL [Concomitant]
     Dates: start: 20101004, end: 20101004
  11. PERTUZUMAB [Suspect]
     Dosage: DOSE PER PROTOCOL
     Route: 042
     Dates: start: 20101025
  12. METOCLOPRAMID [Concomitant]
     Dates: start: 20101010, end: 20101010

REACTIONS (1)
  - NEUTROPENIC INFECTION [None]
